FAERS Safety Report 10463778 (Version 1)
Quarter: 2014Q3

REPORT INFORMATION
  Report Type: Spontaneous
  Country: TR (occurrence: TR)
  Receive Date: 20140919
  Receipt Date: 20140919
  Transmission Date: 20150326
  Serious: Yes (Death, Other)
  Sender: FDA-Public Use
  Company Number: PHHY2014TR119491

PATIENT
  Age: 73 Year
  Sex: Female

DRUGS (4)
  1. HYDROXYUREA. [Suspect]
     Active Substance: HYDROXYUREA
     Indication: LEUKAEMIA BASOPHILIC
     Dosage: 1000 MG, PER DAY
  2. HYDROXYUREA. [Suspect]
     Active Substance: HYDROXYUREA
     Dosage: 500 MG, PER DAY
  3. HYDROXYUREA. [Suspect]
     Active Substance: HYDROXYUREA
     Dosage: 1500 MG, PER DAY
  4. IMATINIB [Suspect]
     Active Substance: IMATINIB
     Indication: LEUKAEMIA BASOPHILIC
     Dosage: 300 MG, PER DAY

REACTIONS (4)
  - Haemoglobin decreased [Unknown]
  - Platelet count decreased [Unknown]
  - Death [Fatal]
  - Drug ineffective [Unknown]
